FAERS Safety Report 6680296-6 (Version None)
Quarter: 2010Q2

REPORT INFORMATION
  Report Type: 
  Country: None (occurrence: None)
  Receive Date: 20100408
  Receipt Date: 20100308
  Transmission Date: 20101027
  Serious: Yes (Death)
  Sender: FDA-Public Use
  Company Number: AUR-APL-2009-01105

PATIENT
  Age: 30 Year
  Sex: Male

DRUGS (4)
  1. SERTRALINE HCL [Suspect]
     Indication: DEPRESSION
     Dosage: 100MG, ORAL
     Route: 048
     Dates: start: 20081101, end: 20090301
  2. ETHANOL [Suspect]
  3. QUETIAPINE [Suspect]
     Indication: DYSTHYMIC DISORDER
     Dosage: 200MG - ORAL
     Route: 048
     Dates: start: 20081101, end: 20090301
  4. MONTELUKAST SODIUM [Concomitant]

REACTIONS (2)
  - ALCOHOL POISONING [None]
  - SUDDEN DEATH [None]
